FAERS Safety Report 12549052 (Version 2)
Quarter: 2016Q3

REPORT INFORMATION
  Report Type: Spontaneous
  Country: US (occurrence: US)
  Receive Date: 20160712
  Receipt Date: 20160726
  Transmission Date: 20161109
  Serious: Yes (Other)
  Sender: FDA-Public Use
  Company Number: US-AUROBINDO-AUR-APL-2016-08948

PATIENT
  Age: 75 Year
  Sex: Female

DRUGS (5)
  1. PREDNISONE. [Suspect]
     Active Substance: PREDNISONE
     Dosage: 160 MG, UNK
     Route: 065
  2. PREDNISONE. [Suspect]
     Active Substance: PREDNISONE
     Dosage: 20 MG, UNK
     Route: 065
  3. PREDNISONE. [Suspect]
     Active Substance: PREDNISONE
     Dosage: 50 MG, UNK
     Route: 065
  4. METHOTREXATE. [Suspect]
     Active Substance: METHOTREXATE
     Indication: TEMPORAL ARTERITIS
     Route: 065
  5. PREDNISONE. [Suspect]
     Active Substance: PREDNISONE
     Indication: TEMPORAL ARTERITIS
     Dosage: 60 MG, UNK
     Route: 065

REACTIONS (7)
  - Pain of skin [Recovering/Resolving]
  - Mydriasis [Recovering/Resolving]
  - Aspergillus infection [Recovering/Resolving]
  - Eyelid ptosis [Recovering/Resolving]
  - Headache [Recovering/Resolving]
  - Claudication of jaw muscles [Recovering/Resolving]
  - Eye movement disorder [Recovering/Resolving]
